FAERS Safety Report 17240836 (Version 1)
Quarter: 2020Q1

REPORT INFORMATION
  Report Type: Report from Study
  Country: ES (occurrence: ES)
  Receive Date: 20200107
  Receipt Date: 20200107
  Transmission Date: 20200409
  Serious: Yes (Death, Hospitalization)
  Sender: FDA-Public Use
  Company Number: ES-TEVA-2020-ES-1163448

PATIENT
  Age: 85 Year
  Sex: Male

DRUGS (6)
  1. TRANGOREX 200 MG COMPRIMIDOS , 30 COMPRIMIDOS [Interacting]
     Active Substance: AMIODARONE HYDROCHLORIDE
     Dosage: 200 MG PER DAY
     Route: 048
     Dates: start: 20180425, end: 20180429
  2. OMEPRAZOL (2141A) [Concomitant]
     Active Substance: OMEPRAZOLE
     Indication: PROPHYLAXIS
     Dosage: 20 MG PER DAY
     Route: 048
     Dates: start: 20170628, end: 20180429
  3. ACETILSALICILICO ACIDO (176A) [Interacting]
     Active Substance: ASPIRIN
     Indication: PROPHYLAXIS
     Dosage: 100 MG PER DAY
     Route: 048
     Dates: start: 20171212, end: 20180429
  4. SERTRALINA (2537A) [Interacting]
     Active Substance: SERTRALINE HYDROCHLORIDE
     Indication: DEPRESSION
     Dosage: 50 MG PER DAY
     Route: 048
     Dates: start: 20180320, end: 20180429
  5. CLOPIDOGREL [Suspect]
     Active Substance: CLOPIDOGREL BISULFATE
     Indication: PROPHYLAXIS
     Dosage: 75 MG PER DAY
     Route: 048
     Dates: start: 20171212, end: 20180429
  6. ATORVASTATINA (7400A) [Concomitant]
     Active Substance: ATORVASTATIN
     Indication: DYSLIPIDAEMIA
     Dosage: 40 MG PER DAY
     Route: 048
     Dates: start: 20180320, end: 20180429

REACTIONS (2)
  - Lower gastrointestinal haemorrhage [Fatal]
  - Drug interaction [Unknown]

NARRATIVE: CASE EVENT DATE: 20180429
